FAERS Safety Report 4369865-6 (Version None)
Quarter: 2004Q2

REPORT INFORMATION
  Report Type: 
  Country: None (occurrence: None)
  Receive Date: 20040527
  Receipt Date: 20040514
  Transmission Date: 20050107
  Serious: Yes (Hospitalization)
  Sender: FDA-Public Use
  Company Number: 2004032658

PATIENT
  Age: 52 Year
  Sex: Female
  Weight: 70 kg

DRUGS (3)
  1. VIBRAMYCIN [Suspect]
     Indication: ILL-DEFINED DISORDER
     Dosage: 200 MG (DAILY), ORAL
     Route: 048
     Dates: start: 20020111
  2. FOLIC ACID [Suspect]
     Indication: ILL-DEFINED DISORDER
     Dosage: 5 MG (DAILY), ORAL
     Route: 048
  3. HYDROXYCHLOROQUINE PHOSPHATE [Suspect]
     Indication: ILL-DEFINED DISORDER
     Dosage: 300 MG (DAILY), ORAL
     Route: 048
     Dates: start: 20020111

REACTIONS (3)
  - CONVULSION [None]
  - NEUROPATHY [None]
  - RETINOPATHY [None]
